FAERS Safety Report 6977122-4 (Version None)
Quarter: 2010Q3

REPORT INFORMATION
  Report Type: 
  Country: None (occurrence: None)
  Receive Date: 20100910
  Receipt Date: 20100901
  Transmission Date: 20110219
  Serious: Yes (Hospitalization)
  Sender: FDA-Public Use
  Company Number: US-ASTRAZENECA-2010SE41591

PATIENT
  Sex: Male

DRUGS (2)
  1. SEROQUEL [Suspect]
     Indication: BIPOLAR DISORDER
  2. LITHIUM [Suspect]
     Indication: BIPOLAR DISORDER

REACTIONS (5)
  - AGITATION [None]
  - FEEDING DISORDER NEONATAL [None]
  - FEELING JITTERY [None]
  - PYREXIA [None]
  - TREMOR [None]
